FAERS Safety Report 21689227 (Version 1)
Quarter: 2022Q4

REPORT INFORMATION
  Report Type: Report from Study
  Country: US (occurrence: US)
  Receive Date: 20221206
  Receipt Date: 20221206
  Transmission Date: 20230113
  Serious: No
  Sender: FDA-Public Use
  Company Number: US-ABBVIE-4176087

PATIENT
  Age: 26 Year
  Sex: Female

DRUGS (1)
  1. HUMIRA [Suspect]
     Active Substance: ADALIMUMAB
     Indication: Hidradenitis
     Dosage: CITRATE FREE
     Route: 058

REACTIONS (3)
  - Sinusitis [Recovered/Resolved]
  - Respiratory tract congestion [Unknown]
  - Sinus congestion [Unknown]

NARRATIVE: CASE EVENT DATE: 20221013
